FAERS Safety Report 21395918 (Version 1)
Quarter: 2022Q3

REPORT INFORMATION
  Report Type: Spontaneous
  Country: BR (occurrence: BR)
  Receive Date: 20220930
  Receipt Date: 20220930
  Transmission Date: 20221027
  Serious: Yes (Other)
  Sender: FDA-Public Use
  Company Number: BR-NOVARTISPH-NVSC2022BR218771

PATIENT
  Sex: Female

DRUGS (2)
  1. ZOMETA [Suspect]
     Active Substance: ZOLEDRONIC ACID
     Indication: Invasive breast carcinoma
     Dosage: UNK (4MG/100 ML)
     Route: 065
  2. ANASTROZOLE [Suspect]
     Active Substance: ANASTROZOLE
     Indication: Product used for unknown indication
     Dosage: UNK
     Route: 065

REACTIONS (12)
  - Developmental hip dysplasia [Unknown]
  - Pain in extremity [Not Recovered/Not Resolved]
  - Burning sensation [Not Recovered/Not Resolved]
  - Fracture [Unknown]
  - Exostosis [Unknown]
  - Musculoskeletal discomfort [Unknown]
  - Oedema peripheral [Unknown]
  - Joint effusion [Unknown]
  - Tendon disorder [Unknown]
  - Ill-defined disorder [Unknown]
  - Bone erosion [Unknown]
  - Bone pain [Unknown]
